FAERS Safety Report 13984791 (Version 1)
Quarter: 2017Q3

REPORT INFORMATION
  Report Type: Spontaneous
  Country: IT (occurrence: IT)
  Receive Date: 20170918
  Receipt Date: 20170918
  Transmission Date: 20171128
  Serious: Yes (Other)
  Sender: FDA-Public Use
  Company Number: IT-MYLANLABS-2017M1056767

PATIENT
  Age: 33 Year
  Sex: Male

DRUGS (1)
  1. SIMVASTATINA MYLAN GENERICS 40 MG COMPRESSE RIVESTITE CON FILM [Suspect]
     Active Substance: SIMVASTATIN
     Indication: PRODUCT USED FOR UNKNOWN INDICATION
     Dosage: 280 MG TOTAL
     Route: 048
     Dates: start: 20170831

REACTIONS (3)
  - Drug abuse [Unknown]
  - Overdose [Unknown]
  - Nausea [Unknown]

NARRATIVE: CASE EVENT DATE: 20170831
